FAERS Safety Report 5339206-6 (Version None)
Quarter: 2007Q2

REPORT INFORMATION
  Report Type: 
  Country: None (occurrence: None)
  Receive Date: 20070530
  Receipt Date: 20070522
  Transmission Date: 20071010
  Serious: Yes (Hospitalization, Other)
  Sender: FDA-Public Use
  Company Number: JP-PFIZER INC-2007041857

PATIENT
  Age: 77 Year
  Sex: Female

DRUGS (2)
  1. NORVASC [Suspect]
     Indication: HYPERTENSION
     Dosage: DAILY DOSE:2.5MG-TEXT:2.5 MG DAILY
     Route: 048
  2. TENORMIN [Suspect]
     Indication: HYPERTENSION
     Dosage: DAILY DOSE:25MG-TEXT:25 MG DAILY
     Route: 048
     Dates: start: 20031101

REACTIONS (2)
  - HEART RATE DECREASED [None]
  - LOSS OF CONSCIOUSNESS [None]
